FAERS Safety Report 5593356-8 (Version None)
Quarter: 2008Q1

REPORT INFORMATION
  Report Type: 
  Country: None (occurrence: None)
  Receive Date: 20080114
  Receipt Date: 20071227
  Transmission Date: 20080703
  Serious: Yes (Other)
  Sender: FDA-Public Use
  Company Number: SPV1-2007-04575

PATIENT
  Age: 11 Year
  Sex: Male
  Weight: 39.9 kg

DRUGS (1)
  1. VYVANSE [Suspect]
     Indication: ATTENTION DEFICIT/HYPERACTIVITY DISORDER
     Dosage: 70 MG, ORAL
     Route: 048
     Dates: start: 20070829

REACTIONS (1)
  - AGGRESSION [None]
